FAERS Safety Report 7724565-7 (Version None)
Quarter: 2011Q3

REPORT INFORMATION
  Report Type: 
  Country: None (occurrence: None)
  Receive Date: 20110901
  Receipt Date: 20110819
  Transmission Date: 20111222
  Serious: Yes (Hospitalization)
  Sender: FDA-Public Use
  Company Number: GB-CELGENEUS-167-C5013-11041067

PATIENT
  Sex: Male
  Weight: 66.4 kg

DRUGS (17)
  1. LENALIDOMIDE [Suspect]
     Indication: MULTIPLE MYELOMA
     Dosage: 15 MILLIGRAM
     Route: 048
     Dates: start: 20110319, end: 20110408
  2. DEXAMETHASONE [Suspect]
     Indication: MULTIPLE MYELOMA
     Dosage: 40 MILLIGRAM
     Route: 048
     Dates: start: 20110319, end: 20110401
  3. ACETAMINOPHEN [Concomitant]
     Route: 048
     Dates: start: 20091105
  4. FILGRASTIM [Concomitant]
     Dosage: 800 MICROGRAM
     Route: 058
     Dates: end: 20110417
  5. DEXAMETHASONE [Suspect]
     Route: 048
  6. ZOPICLONE [Concomitant]
     Dosage: 375 NANOGRAM
     Route: 048
  7. CYCLOPHOSPHAMIDE [Suspect]
     Indication: MULTIPLE MYELOMA
     Route: 048
     Dates: start: 20110319, end: 20110325
  8. GABAPENTIN [Concomitant]
     Dosage: 600 MILLIGRAM
     Route: 048
  9. ZOPICLONE [Concomitant]
     Route: 048
     Dates: start: 20101101
  10. INFUMORPH [Concomitant]
     Dosage: 20 MILLIGRAM
     Route: 048
  11. FLUCONAZOLE [Concomitant]
     Route: 048
     Dates: start: 20110329
  12. ACYCLOVIR [Concomitant]
     Route: 048
     Dates: start: 20091105
  13. GABAPENTIN [Concomitant]
     Route: 048
     Dates: start: 20101101
  14. ASPIRIN [Concomitant]
     Indication: PROPHYLAXIS
     Route: 065
  15. LMWH [Concomitant]
     Indication: PROPHYLAXIS
     Route: 065
  16. OMEPRAZOLE [Concomitant]
     Dosage: 20 MILLIGRAM
     Route: 048
  17. LAXIDO [Concomitant]
     Indication: LAXATIVE SUPPORTIVE CARE
     Route: 048

REACTIONS (5)
  - PLEURITIC PAIN [None]
  - PYREXIA [None]
  - HAEMOGLOBIN DECREASED [None]
  - FEBRILE NEUTROPENIA [None]
  - BACK PAIN [None]
